FAERS Safety Report 12433590 (Version 3)
Quarter: 2019Q2

REPORT INFORMATION
  Report Type: Spontaneous
  Country: US (occurrence: US)
  Receive Date: 20160603
  Receipt Date: 20190511
  Transmission Date: 20190711
  Serious: No
  Sender: FDA-Public Use
  Company Number: US-TEVA-659630USA

PATIENT
  Sex: Female

DRUGS (1)
  1. COPAXONE [Suspect]
     Active Substance: GLATIRAMER ACETATE
     Indication: MULTIPLE SCLEROSIS
     Dosage: UNKNOWN DOSAGE
     Route: 065

REACTIONS (7)
  - Injection site pain [Unknown]
  - Normal newborn [Unknown]
  - Injection site induration [Unknown]
  - Maternal exposure during pregnancy [Unknown]
  - Back pain [Unknown]
  - Injection site atrophy [Unknown]
  - Discomfort [Unknown]
